FAERS Safety Report 14488277 (Version 1)
Quarter: 2018Q1

REPORT INFORMATION
  Report Type: Spontaneous
  Country: NL (occurrence: NL)
  Receive Date: 20180205
  Receipt Date: 20180205
  Transmission Date: 20180509
  Serious: Yes (Hospitalization)
  Sender: FDA-Public Use
  Company Number: NL-PFIZER INC-2018044843

PATIENT
  Age: 56 Year
  Sex: Female
  Weight: 71 kg

DRUGS (1)
  1. DOCETAXEL. [Suspect]
     Active Substance: DOCETAXEL
     Indication: BREAST CANCER
     Dosage: 1 DF, EVERY 3 WEEKS
     Route: 050
     Dates: start: 20170523

REACTIONS (7)
  - Pain in extremity [Recovered/Resolved]
  - Hyperpyrexia [Recovered/Resolved]
  - Onycholysis [Recovered/Resolved]
  - Dermatitis bullous [Recovered/Resolved]
  - Visual acuity reduced [Recovered/Resolved]
  - Lacrimation increased [Recovering/Resolving]
  - Hypoaesthesia [Recovered/Resolved]

NARRATIVE: CASE EVENT DATE: 20170526
